FAERS Safety Report 4564087-8 (Version None)
Quarter: 2005Q1

REPORT INFORMATION
  Report Type: 
  Country: None (occurrence: None)
  Receive Date: 20050128
  Receipt Date: 20041217
  Transmission Date: 20050727
  Serious: Yes (Other)
  Sender: FDA-Public Use
  Company Number: US-MERCK-0412USA02261

PATIENT
  Age: 40 Year
  Sex: Male

DRUGS (6)
  1. VIOXX [Suspect]
     Indication: ARTHRITIS
     Route: 048
     Dates: start: 20000325
  2. VIOXX [Suspect]
     Route: 048
     Dates: start: 20000430
  3. VIOXX [Suspect]
     Indication: BACK INJURY
     Route: 048
     Dates: start: 20000325
  4. VIOXX [Suspect]
     Route: 048
     Dates: start: 20000430
  5. VALIUM [Concomitant]
     Route: 065
  6. VICOPROFEN [Concomitant]
     Route: 065

REACTIONS (8)
  - CEREBROVASCULAR ACCIDENT [None]
  - DRUG WITHDRAWAL SYNDROME [None]
  - FALL [None]
  - JOINT INJURY [None]
  - NECK INJURY [None]
  - OEDEMA PERIPHERAL [None]
  - SKIN LACERATION [None]
  - TORTICOLLIS [None]
